FAERS Safety Report 7102099-0 (Version None)
Quarter: 2010Q4

REPORT INFORMATION
  Report Type: 
  Country: None (occurrence: None)
  Receive Date: 20101115
  Receipt Date: 20101103
  Transmission Date: 20110411
  Serious: Yes (Hospitalization)
  Sender: FDA-Public Use
  Company Number: US-BIOGENIDEC-2010BI038738

PATIENT
  Age: 55 Year
  Sex: Male

DRUGS (2)
  1. TYSABRI [Suspect]
     Indication: MULTIPLE SCLEROSIS
     Route: 042
     Dates: start: 20070606, end: 20100401
  2. TYSABRI [Suspect]
     Route: 042
     Dates: start: 20101001

REACTIONS (2)
  - ARTERIAL THERAPEUTIC PROCEDURE [None]
  - GAIT DISTURBANCE [None]
